FAERS Safety Report 15543780 (Version 2)
Quarter: 2018Q4

REPORT INFORMATION
  Report Type: Report from Study
  Country: US (occurrence: US)
  Receive Date: 20181023
  Receipt Date: 20181210
  Transmission Date: 20190205
  Serious: Yes (Hospitalization, Disabling, Other)
  Sender: FDA-Public Use
  Company Number: US-TEVA-2018-US-954118

PATIENT
  Age: 19 Year
  Sex: Male
  Weight: 115.4 kg

DRUGS (19)
  1. DOXORUBICIN [Suspect]
     Active Substance: DOXORUBICIN
     Indication: ACUTE LYMPHOCYTIC LEUKAEMIA
     Dosage: DAYS1, 8, 15
     Route: 042
     Dates: start: 20180618
  2. RUXOLITINIB [Suspect]
     Active Substance: RUXOLITINIB
     Dosage: 160 MG/M2 DAILY; FORM STRENGTH: 40 MG/M2
     Route: 048
  3. RUXOLITINIB [Suspect]
     Active Substance: RUXOLITINIB
     Dosage: 160 MG/M2 DAILY; FORM STRENGTH: 40 MG/M2
     Route: 048
     Dates: start: 20180807
  4. PEGASPARGASE [Suspect]
     Active Substance: PEGASPARGASE
     Indication: ACUTE LYMPHOCYTIC LEUKAEMIA
     Dosage: FORM STRENGTH: 1500 IU/M2 ON DAY 4
     Route: 042
  5. METHOTREXATE. [Suspect]
     Active Substance: METHOTREXATE
     Indication: ACUTE LYMPHOCYTIC LEUKAEMIA
     Dosage: ON DAY1
     Route: 037
     Dates: start: 20171219
  6. METHOTREXATE. [Suspect]
     Active Substance: METHOTREXATE
     Dosage: ON DAY1
     Route: 037
     Dates: start: 20180618
  7. VINCRISTINE [Suspect]
     Active Substance: VINCRISTINE
     Indication: ACUTE LYMPHOCYTIC LEUKAEMIA
     Dosage: 1.5 MG/M2 (2 MG) ON DAYS 1, 8, 15
     Route: 042
     Dates: start: 20180103, end: 20180625
  8. CHOLECALCIFEROL [Concomitant]
     Active Substance: CHOLECALCIFEROL
     Route: 065
     Dates: start: 20171201
  9. LEVOCARNITINE. [Concomitant]
     Active Substance: LEVOCARNITINE
     Route: 065
     Dates: start: 20171211
  10. RUXOLITINIB [Suspect]
     Active Substance: RUXOLITINIB
     Indication: ACUTE LYMPHOCYTIC LEUKAEMIA
     Dosage: 80 MG/M2 DAILY; FORM STRENGTH: 40 MG/M2
     Route: 048
     Dates: start: 20171219, end: 20180625
  11. PEGASPARGASE [Suspect]
     Active Substance: PEGASPARGASE
     Dosage: DAY 4
     Route: 042
     Dates: start: 20180621, end: 20180621
  12. DEXAMETHASONE. [Suspect]
     Active Substance: DEXAMETHASONE
     Indication: ACUTE LYMPHOCYTIC LEUKAEMIA
     Dosage: 5 MG/M2, (12 MG BID) ON DAYS 1 TO 7; 12 MG, BID ON DAYS 15 TO 21.
     Route: 048
     Dates: start: 20180618, end: 20180705
  13. VINCRISTINE [Suspect]
     Active Substance: VINCRISTINE
     Dosage: 1.5 MG/M2 (2 MG) ON DAYS 1, 8, 15
     Route: 042
     Dates: start: 20180626
  14. PEGASPARGASE [Suspect]
     Active Substance: PEGASPARGASE
     Dosage: DAY 4
     Route: 042
     Dates: start: 20180821, end: 20180821
  15. PEGASPARGASE [Suspect]
     Active Substance: PEGASPARGASE
     Route: 042
     Dates: start: 20180103
  16. DEXAMETHASONE. [Suspect]
     Active Substance: DEXAMETHASONE
     Dosage: 5 MG/M2, (12 MG BID) ON DAYS 1 TO 7; 12 MG, BID ON DAYS 15 TO 21.
     Route: 048
     Dates: start: 20180807
  17. BACTRIM DS [Concomitant]
     Active Substance: SULFAMETHOXAZOLE\TRIMETHOPRIM
     Route: 065
     Dates: start: 20171110
  18. AMLODIPINE [Concomitant]
     Active Substance: AMLODIPINE BESYLATE
     Route: 065
     Dates: start: 20180330
  19. RIVAROXABAN [Concomitant]
     Active Substance: RIVAROXABAN
     Route: 065
     Dates: start: 20171201

REACTIONS (9)
  - Myositis [Recovering/Resolving]
  - Escherichia bacteraemia [Recovering/Resolving]
  - Cellulitis [Recovering/Resolving]
  - Bronchopulmonary aspergillosis [Unknown]
  - Septic shock [Recovering/Resolving]
  - Hyperglycaemia [Recovered/Resolved]
  - Parainfluenzae virus infection [Recovering/Resolving]
  - Febrile neutropenia [Recovering/Resolving]
  - Pneumonia [Not Recovered/Not Resolved]

NARRATIVE: CASE EVENT DATE: 20180625
